FAERS Safety Report 23659988 (Version 2)
Quarter: 2024Q2

REPORT INFORMATION
  Report Type: Spontaneous
  Country: US (occurrence: US)
  Receive Date: 20240321
  Receipt Date: 20240528
  Transmission Date: 20240722
  Serious: No
  Sender: FDA-Public Use
  Company Number: US-SA-SAC20240319001211

PATIENT
  Age: 86 Year
  Sex: Male

DRUGS (1)
  1. DUPIXENT [Suspect]
     Active Substance: DUPILUMAB
     Indication: Neurodermatitis
     Dosage: 300 MG, QOW
     Route: 058
     Dates: start: 202208

REACTIONS (2)
  - Localised infection [Unknown]
  - Vision blurred [Unknown]
